FAERS Safety Report 12797991 (Version 1)
Quarter: 2016Q3

REPORT INFORMATION
  Report Type: Spontaneous
  Country: GB (occurrence: GB)
  Receive Date: 20160930
  Receipt Date: 20160930
  Transmission Date: 20161109
  Serious: Yes (Death)
  Sender: FDA-Public Use
  Company Number: GB-ORION CORPORATION ORION PHARMA-TREX2016-1835

PATIENT
  Age: 56 Year
  Sex: Female
  Weight: 66.2 kg

DRUGS (13)
  1. PARACETAMOL [Concomitant]
     Active Substance: ACETAMINOPHEN
     Route: 065
  2. QUININE BISULFATE [Concomitant]
     Active Substance: QUININE BISULFATE
     Route: 065
  3. LEVOTHYROXINE. [Concomitant]
     Active Substance: LEVOTHYROXINE
     Route: 065
  4. MST CONTINUS [Concomitant]
     Active Substance: MORPHINE SULFATE
     Route: 065
  5. ZOPICLONE [Concomitant]
     Active Substance: ZOPICLONE
     Route: 065
  6. DABIGATRAN [Suspect]
     Active Substance: DABIGATRAN
     Indication: PULMONARY EMBOLISM
     Route: 048
     Dates: start: 20140926, end: 20160811
  7. AMITRIPTYLINE [Concomitant]
     Active Substance: AMITRIPTYLINE
     Route: 065
  8. ORAMORPH [Concomitant]
     Active Substance: MORPHINE SULFATE
     Route: 065
  9. METHOTREXATE (TRADE NAME UNKNOWN) [Suspect]
     Active Substance: METHOTREXATE
     Indication: RHEUMATOID ARTHRITIS
     Route: 048
     Dates: start: 20151207, end: 20160804
  10. CETIRIZINE [Concomitant]
     Active Substance: CETIRIZINE HYDROCHLORIDE
     Route: 065
  11. OMEPRAZOLE. [Concomitant]
     Active Substance: OMEPRAZOLE
     Route: 065
  12. CELECOXIB. [Suspect]
     Active Substance: CELECOXIB
     Indication: RHEUMATOID ARTHRITIS
     Route: 048
     Dates: start: 20151209
  13. TAZOCIN [Concomitant]
     Active Substance: PIPERACILLIN SODIUM\TAZOBACTAM SODIUM
     Route: 042

REACTIONS (8)
  - Pneumonia [Fatal]
  - Infection [Unknown]
  - Pancytopenia [Not Recovered/Not Resolved]
  - Gastrointestinal haemorrhage [Not Recovered/Not Resolved]
  - Thirst decreased [Unknown]
  - Epistaxis [Not Recovered/Not Resolved]
  - Decreased appetite [Unknown]
  - Delirium [Unknown]

NARRATIVE: CASE EVENT DATE: 201608
